FAERS Safety Report 6696820-3 (Version None)
Quarter: 2010Q2

REPORT INFORMATION
  Report Type: 
  Country: None (occurrence: None)
  Receive Date: 20100426
  Receipt Date: 20100423
  Transmission Date: 20101027
  Serious: Yes (Death, Hospitalization)
  Sender: FDA-Public Use
  Company Number: GXKR2009DE06264

PATIENT
  Age: 78 Year
  Sex: Male
  Weight: 58 kg

DRUGS (13)
  1. CEFTRIAXONE [Suspect]
     Indication: PNEUMONIA
     Dosage: 1000 MG, QD
     Route: 042
     Dates: start: 20080718, end: 20080722
  2. PANTOPRAZOLE [Interacting]
     Indication: PROPHYLAXIS AGAINST GASTROINTESTINAL ULCER
     Dosage: 40 MG, QD
     Route: 048
     Dates: start: 20080712, end: 20080726
  3. AVELOX [Suspect]
     Indication: PNEUMONIA
     Dosage: 400 MG, QD
     Route: 048
     Dates: start: 20080701, end: 20080710
  4. CIPROFLOXACIN HCL [Suspect]
     Indication: EPIDIDYMITIS
     Dosage: 250 MG, QD
     Route: 048
     Dates: start: 20080612, end: 20080710
  5. ASS CT [Concomitant]
     Route: 048
  6. DIGITOXIN [Concomitant]
     Route: 048
  7. ENALAGAMMA [Concomitant]
     Route: 048
  8. FURORESE [Concomitant]
     Route: 048
  9. GLEEVEC [Concomitant]
     Route: 048
  10. NOVAMINSULFON ^BRAUN^ [Concomitant]
     Route: 048
  11. NOVONORM [Concomitant]
     Route: 048
  12. SYMBICORT [Concomitant]
  13. TORASEMIDE [Concomitant]
     Route: 048

REACTIONS (1)
  - PSEUDOMEMBRANOUS COLITIS [None]
